FAERS Safety Report 9199404 (Version 1)
Quarter: 2013Q1

REPORT INFORMATION
  Report Type: Spontaneous
  Country: US (occurrence: US)
  Receive Date: 20130329
  Receipt Date: 20130329
  Transmission Date: 20140127
  Serious: No
  Sender: FDA-Public Use
  Company Number: US-PFIZER INC-2013097269

PATIENT
  Age: 32 Year
  Sex: Male
  Weight: 113.38 kg

DRUGS (1)
  1. VIAGRA [Suspect]
     Dosage: 300 MG, UNK
     Route: 048
     Dates: start: 20130324

REACTIONS (3)
  - Penile erythema [Not Recovered/Not Resolved]
  - Penis disorder [Not Recovered/Not Resolved]
  - Penile pain [Not Recovered/Not Resolved]
